FAERS Safety Report 5819189-2 (Version None)
Quarter: 2008Q3

REPORT INFORMATION
  Report Type: 
  Country: None (occurrence: None)
  Receive Date: 20080723
  Receipt Date: 20080718
  Transmission Date: 20090109
  Serious: Yes (Hospitalization)
  Sender: FDA-Public Use
  Company Number: B0529874A

PATIENT
  Age: 15 Year
  Sex: Male

DRUGS (8)
  1. AUGMENTIN '125' [Suspect]
     Indication: DRUG USE FOR UNKNOWN INDICATION
     Dosage: 2G SINGLE DOSE
     Route: 042
     Dates: start: 20080331, end: 20080331
  2. ZOPHREN [Suspect]
     Indication: DRUG USE FOR UNKNOWN INDICATION
     Dosage: 4MG SINGLE DOSE
     Route: 042
     Dates: start: 20080331, end: 20080331
  3. ACETAMINOPHEN [Suspect]
     Indication: DRUG USE FOR UNKNOWN INDICATION
     Dosage: 1G THREE TIMES PER DAY
     Route: 042
     Dates: start: 20080331, end: 20080401
  4. ACETAMINOPHEN AND CODEINE PHOSPHATE [Suspect]
     Indication: DRUG USE FOR UNKNOWN INDICATION
     Route: 048
     Dates: start: 20080401, end: 20080402
  5. NUBAIN [Suspect]
     Indication: DRUG USE FOR UNKNOWN INDICATION
     Dosage: 20MG TWICE PER DAY
     Route: 042
     Dates: start: 20080331, end: 20080401
  6. SUFENTA [Concomitant]
     Indication: DRUG USE FOR UNKNOWN INDICATION
     Dosage: 15MCG PER DAY
     Route: 065
     Dates: start: 20080331
  7. DIPRIVAN [Concomitant]
     Indication: DRUG USE FOR UNKNOWN INDICATION
     Dosage: 300MG PER DAY
     Route: 065
     Dates: start: 20080331
  8. OXYGENE + PROTOXYDE AZOTE [Concomitant]
     Indication: DRUG USE FOR UNKNOWN INDICATION
     Route: 065
     Dates: start: 20080331, end: 20080401

REACTIONS (3)
  - PRURITUS [None]
  - RASH [None]
  - VOMITING [None]
